FAERS Safety Report 9123722 (Version 2)
Quarter: 2013Q1

REPORT INFORMATION
  Report Type: Spontaneous
  Country: US (occurrence: US)
  Receive Date: 20130227
  Receipt Date: 20130329
  Transmission Date: 20140127
  Serious: No
  Sender: FDA-Public Use
  Company Number: US-009507513-1302USA012489

PATIENT
  Age: 20 Year
  Sex: Female
  Weight: 58.96 kg

DRUGS (1)
  1. IMPLANON [Suspect]
     Indication: CONTRACEPTION

REACTIONS (7)
  - Dehydration [Unknown]
  - Dizziness [Unknown]
  - Mood altered [Unknown]
  - Nausea [Unknown]
  - Pain [Unknown]
  - Medical device complication [Unknown]
  - Device difficult to use [Unknown]
